FAERS Safety Report 14700283 (Version 1)
Quarter: 2018Q1

REPORT INFORMATION
  Report Type: Spontaneous
  Country: CO (occurrence: CO)
  Receive Date: 20180330
  Receipt Date: 20180330
  Transmission Date: 20180509
  Serious: Yes (Death)
  Sender: FDA-Public Use
  Company Number: CO-CELGENEUS-COL-20180310133

PATIENT
  Age: 64 Year
  Sex: Female

DRUGS (1)
  1. ABRAXANE [Suspect]
     Active Substance: PACLITAXEL
     Indication: PANCREATIC CARCINOMA
     Dosage: 160 MILLIGRAM
     Route: 041
     Dates: start: 20161103, end: 20180215

REACTIONS (3)
  - Oedema peripheral [Unknown]
  - Pancreatic carcinoma [Fatal]
  - Paraesthesia [Unknown]

NARRATIVE: CASE EVENT DATE: 20170830
